FAERS Safety Report 18722307 (Version 2)
Quarter: 2021Q1

REPORT INFORMATION
  Report Type: Spontaneous
  Country: CH (occurrence: CH)
  Receive Date: 20210111
  Receipt Date: 20210115
  Transmission Date: 20210419
  Serious: Yes (Other)
  Sender: FDA-Public Use
  Company Number: CH-TEVA-2020-CH-1865024

PATIENT
  Age: 50 Year

DRUGS (1)
  1. LEFLUNOMIDE. [Suspect]
     Active Substance: LEFLUNOMIDE
     Indication: PRODUCT USED FOR UNKNOWN INDICATION
     Route: 065
     Dates: start: 201910

REACTIONS (9)
  - Toxicity to various agents [Recovering/Resolving]
  - Chorea [Recovering/Resolving]
  - Extrapyramidal disorder [Recovering/Resolving]
  - Parkinsonism [Recovering/Resolving]
  - Myoclonus [Recovering/Resolving]
  - Frequent bowel movements [Recovered/Resolved]
  - Serotonin syndrome [Recovering/Resolving]
  - Headache [Recovered/Resolved]
  - Tachycardia [Recovered/Resolved]
